FAERS Safety Report 17880646 (Version 3)
Quarter: 2021Q1

REPORT INFORMATION
  Report Type: Spontaneous
  Country: US (occurrence: US)
  Receive Date: 20200610
  Receipt Date: 20210324
  Transmission Date: 20210419
  Serious: Yes (Life-Threatening, Hospitalization, Other)
  Sender: FDA-Public Use
  Company Number: US-PFIZER INC-2020222210

PATIENT
  Age: 57 Year
  Sex: Male

DRUGS (4)
  1. LEVONORDEFRIN [Suspect]
     Active Substance: LEVONORDEFRIN
     Indication: DENTAL LOCAL ANAESTHESIA
     Dosage: 180 MG
  2. LEVONORDEFRIN [Suspect]
     Active Substance: LEVONORDEFRIN
     Dosage: UNK (CONTAINING 90 MG OF LEVONORDEFRIN)
  3. MEPIVACAINE HCL [Suspect]
     Active Substance: MEPIVACAINE HYDROCHLORIDE
     Dosage: UNK (CONTAINING 36 MG OF MEPIVACAINE; GINGIVAL INJECTION)
  4. MEPIVACAINE HCL [Suspect]
     Active Substance: MEPIVACAINE HYDROCHLORIDE
     Indication: DENTAL LOCAL ANAESTHESIA
     Dosage: 72 MG

REACTIONS (5)
  - Cardiomegaly [Unknown]
  - Off label use [Unknown]
  - Hypertensive crisis [Recovered/Resolved]
  - Pulmonary oedema [Unknown]
  - Myocardial infarction [Unknown]
